FAERS Safety Report 25093827 (Version 1)
Quarter: 2025Q1

REPORT INFORMATION
  Report Type: Spontaneous
  Country: US (occurrence: None)
  Receive Date: 20250318
  Receipt Date: 20250318
  Transmission Date: 20250409
  Serious: Yes (Hospitalization)
  Sender: FDA-CTU
  Company Number: None

PATIENT
  Age: 48 Year
  Sex: Female

DRUGS (3)
  1. DEVICE [Suspect]
     Active Substance: DEVICE
     Indication: Complement deficiency disease
     Route: 042
     Dates: start: 202312, end: 202312
  2. RUCONEST [Suspect]
     Active Substance: CONESTAT ALFA
  3. TAKHZYRO [Suspect]
     Active Substance: LANADELUMAB-FLYO

REACTIONS (2)
  - Weight decreased [None]
  - Hereditary angioedema [None]

NARRATIVE: CASE EVENT DATE: 20250228
